FAERS Safety Report 4868486-6 (Version None)
Quarter: 2005Q4

REPORT INFORMATION
  Report Type: 
  Country: None (occurrence: None)
  Receive Date: 20051223
  Receipt Date: 20051215
  Transmission Date: 20060501
  Serious: Yes (Other)
  Sender: FDA-Public Use
  Company Number: 2005170548

PATIENT
  Sex: Female

DRUGS (1)
  1. NEURONTIN [Suspect]

REACTIONS (2)
  - ADVERSE EVENT [None]
  - NEOPLASM MALIGNANT [None]
